FAERS Safety Report 25532858 (Version 1)
Quarter: 2025Q3

REPORT INFORMATION
  Report Type: Spontaneous
  Country: GB (occurrence: GB)
  Receive Date: 20250709
  Receipt Date: 20250709
  Transmission Date: 20251021
  Serious: Yes (Hospitalization, Other)
  Sender: TEVA
  Company Number: None

PATIENT
  Age: 67 Year
  Sex: Male

DRUGS (2)
  1. RAMIPRIL [Suspect]
     Active Substance: RAMIPRIL
     Indication: Product used for unknown indication
     Dosage: 5MG ONCE A DAY, 5 MG DAILY, DURATION: 8 DAYS
     Route: 065
     Dates: start: 20250622, end: 20250629
  2. SPIRONOLACTONE [Suspect]
     Active Substance: SPIRONOLACTONE
     Indication: Product used for unknown indication
     Dosage: 100MG ONCE A DAY, 100 MG DAILY
     Route: 065
     Dates: start: 20250620

REACTIONS (1)
  - Hyperkalaemia [Not Recovered/Not Resolved]
